FAERS Safety Report 9297673 (Version 3)
Quarter: 2013Q3

REPORT INFORMATION
  Report Type: Spontaneous
  Country: US (occurrence: US)
  Receive Date: 20130520
  Receipt Date: 20130715
  Transmission Date: 20140515
  Serious: No
  Sender: FDA-Public Use
  Company Number: US-PFIZER INC-2013149251

PATIENT
  Age: 64 Year
  Sex: Male

DRUGS (1)
  1. DOXYCYCLINE HYCLATE [Suspect]
     Indication: INFECTION
     Dosage: 100 MG, 2X/DAY
     Route: 048

REACTIONS (6)
  - Blister [Recovering/Resolving]
  - Arthralgia [Recovered/Resolved]
  - Joint lock [Recovered/Resolved]
  - Visual impairment [Recovered/Resolved]
  - Tinnitus [Recovered/Resolved]
  - Thermal burn [Unknown]
